FAERS Safety Report 6537750-7 (Version None)
Quarter: 2010Q1

REPORT INFORMATION
  Report Type: 
  Country: None (occurrence: None)
  Receive Date: 20100111
  Receipt Date: 20100104
  Transmission Date: 20100710
  Serious: Yes (Other)
  Sender: FDA-Public Use
  Company Number: 1000007934

PATIENT
  Age: 37 Year
  Sex: Female

DRUGS (6)
  1. ESCITALOPRAM [Suspect]
     Dosage: 10 MG (10 MG, 1 IN 1 D), ORAL
     Route: 048
     Dates: start: 20090407, end: 20090630
  2. ESCITALOPRAM [Suspect]
     Dosage: ORAL
     Route: 048
  3. NOCERTONE [Concomitant]
  4. ALPRAZOLAM [Concomitant]
  5. ZOLPIDEM [Concomitant]
  6. LUDEAL [Concomitant]

REACTIONS (6)
  - ABDOMINAL PAIN UPPER [None]
  - ASTHENIA [None]
  - BLOOD ALKALINE PHOSPHATASE INCREASED [None]
  - CHOLESTASIS [None]
  - FOCAL NODULAR HYPERPLASIA [None]
  - GAMMA-GLUTAMYLTRANSFERASE INCREASED [None]
